FAERS Safety Report 6310841-1 (Version None)
Quarter: 2009Q3

REPORT INFORMATION
  Report Type: 
  Country: None (occurrence: None)
  Receive Date: 20090812
  Receipt Date: 20090731
  Transmission Date: 20100115
  Serious: No
  Sender: FDA-Public Use
  Company Number: 340001M09USA

PATIENT
  Age: 36 Year
  Sex: Female

DRUGS (2)
  1. OVIDREL [Suspect]
     Indication: INFERTILITY FEMALE
     Dosage: 250 MCG, ONCE, SUBCUTANEOUS
     Route: 058
     Dates: start: 20081110, end: 20081110
  2. CLOMIPHENE CITRATE (CLOMIFENE) [Concomitant]

REACTIONS (1)
  - BLOOD PROLACTIN INCREASED [None]
